FAERS Safety Report 10183779 (Version 2)
Quarter: 2014Q2

REPORT INFORMATION
  Report Type: Spontaneous
  Country: BR (occurrence: BR)
  Receive Date: 20140520
  Receipt Date: 20140520
  Transmission Date: 20141212
  Serious: Yes (Other)
  Sender: FDA-Public Use
  Company Number: BR-PFIZER INC-2014113576

PATIENT
  Sex: Female

DRUGS (1)
  1. LIPITOR [Suspect]
     Dosage: UNK
     Route: 048

REACTIONS (6)
  - Memory impairment [Unknown]
  - Labyrinthitis [Unknown]
  - Dizziness [Unknown]
  - Headache [Unknown]
  - Activities of daily living impaired [Unknown]
  - Feeling abnormal [Unknown]
